FAERS Safety Report 14122938 (Version 3)
Quarter: 2017Q4

REPORT INFORMATION
  Report Type: Spontaneous
  Country: US (occurrence: US)
  Receive Date: 20171025
  Receipt Date: 20171212
  Transmission Date: 20180321
  Serious: Yes (Death, Hospitalization)
  Sender: FDA-Public Use
  Company Number: US-ROCHE-2013915

PATIENT
  Age: 81 Year
  Sex: Male

DRUGS (1)
  1. ESBRIET [Suspect]
     Active Substance: PIRFENIDONE
     Indication: IDIOPATHIC PULMONARY FIBROSIS
     Route: 048
     Dates: start: 20161201, end: 20171022

REACTIONS (4)
  - Coronary artery disease [Fatal]
  - Syncope [Unknown]
  - Chronic respiratory failure [Fatal]
  - Pain in jaw [Unknown]

NARRATIVE: CASE EVENT DATE: 201710
